FAERS Safety Report 8171388-3 (Version None)
Quarter: 2012Q1

REPORT INFORMATION
  Report Type: 
  Country: None (occurrence: None)
  Receive Date: 20120104
  Receipt Date: 20111201
  Transmission Date: 20120608
  Serious: No
  Sender: FDA-Public Use
  Company Number: 2011HGS-002898

PATIENT
  Age: 63 Year
  Sex: Female
  Weight: 53.978 kg

DRUGS (11)
  1. HYDROCHLOROTHIAZIDE [Concomitant]
  2. PROCARDIA (NIFEDIPINE)(NIFEDIPINE) [Concomitant]
  3. RESTASIS(CICLOSPORIN)(CICLOSPORIN) [Concomitant]
  4. HYDROXYCHLOROQUINE(HYDROXYCHLOROQUINE) (HYDROXYCHLOROQ-UINE [Concomitant]
  5. CARVEDILOL [Concomitant]
  6. CELLCEPT(MYCOPHENOLATE MOFETIL)(MYCOPHENOLATE MOFETIL) [Concomitant]
  7. FLUOROMETHOLONE(FLUOROMETHOLONE)(FLUOROMETHOLONE) [Concomitant]
  8. ASPIRIN [Concomitant]
  9. BENLYSTA [Suspect]
     Indication: SYSTEMIC LUPUS ERYTHEMATOSUS
     Dosage: 10 MG/KG, 1 IN 28 D, INTRAVENOUS
     Route: 041
     Dates: start: 20110903
  10. OMEPRAZOLE [Concomitant]
  11. LOSARTAN(LOSARTAN) (LOSARTAN) [Concomitant]

REACTIONS (4)
  - ABDOMINAL PAIN UPPER [None]
  - ANXIETY [None]
  - FATIGUE [None]
  - SYSTEMIC LUPUS ERYTHEMATOSUS RASH [None]
